FAERS Safety Report 23482548 (Version 2)
Quarter: 2024Q1

REPORT INFORMATION
  Report Type: Spontaneous
  Country: US (occurrence: US)
  Receive Date: 20240205
  Receipt Date: 20240207
  Transmission Date: 20240410
  Serious: No
  Sender: FDA-Public Use
  Company Number: US-Blueprint Medicines Corporation-2201

PATIENT
  Sex: Male

DRUGS (1)
  1. AYVAKIT [Suspect]
     Active Substance: AVAPRITINIB
     Indication: Gastrointestinal stromal tumour
     Route: 065
     Dates: start: 20240124

REACTIONS (7)
  - Decreased appetite [Unknown]
  - Constipation [Unknown]
  - Pain [Unknown]
  - Muscle strain [Unknown]
  - Myalgia [Unknown]
  - Asthenia [Unknown]
  - Unevaluable event [Unknown]
